FAERS Safety Report 11006426 (Version 3)
Quarter: 2015Q2

REPORT INFORMATION
  Report Type: Spontaneous
  Country: JP (occurrence: JP)
  Receive Date: 20150409
  Receipt Date: 20150506
  Transmission Date: 20150821
  Serious: Yes (Other)
  Sender: FDA-Public Use
  Company Number: ALJP2015JP000534

PATIENT
  Age: 67 Year
  Sex: Female

DRUGS (15)
  1. RINDERON V [Concomitant]
     Active Substance: BETAMETHASONE VALERATE
     Indication: LENS EXTRACTION
     Dosage: UNK
     Route: 047
     Dates: start: 20150312, end: 20150312
  2. BENOXIL [Concomitant]
     Active Substance: BENOXINATE HYDROCHLORIDE
     Indication: LENS EXTRACTION
     Dosage: UNK
     Route: 047
     Dates: start: 20150312, end: 20150312
  3. LOXONIN [Concomitant]
     Active Substance: LOXOPROFEN SODIUM
     Indication: LENS EXTRACTION
     Dosage: UNK
     Route: 047
     Dates: start: 20150312, end: 20150312
  4. FLUMETHOLON [Concomitant]
     Active Substance: FLUOROMETHOLONE
     Indication: LENS EXTRACTION
     Dosage: UNK
     Route: 047
     Dates: start: 20150312, end: 20150312
  5. CEFAZOLIN [Concomitant]
     Active Substance: CEFAZOLIN
     Indication: LENS EXTRACTION
     Dosage: UNK
     Route: 047
     Dates: start: 20150312, end: 20150312
  6. BSS PLUS [Suspect]
     Active Substance: CALCIUM CHLORIDE\DEXTROSE\MAGNESIUM CHLORIDE\OXIGLUTATIONE\POTASSIUM CHLORIDE\SODIUM BICARBONATE\SODIUM CHLORIDE\SODIUM PHOSPHATE\SODIUM PHOSPHATE, DIBASIC
     Indication: LENS EXTRACTION
     Dosage: UNK UNK, QD
     Route: 031
     Dates: start: 20150312, end: 20150312
  7. OPEGAN [Concomitant]
     Indication: LENS EXTRACTION
     Dosage: UNK
     Route: 047
     Dates: start: 20150312, end: 20150312
  8. XYLOCAINE [Concomitant]
     Active Substance: LIDOCAINE HYDROCHLORIDE
     Indication: LENS EXTRACTION
     Dosage: UNK
     Route: 047
     Dates: start: 20150312, end: 20150312
  9. MYDRIN P [Concomitant]
     Indication: LENS EXTRACTION
     Dosage: UNK
     Route: 047
     Dates: start: 20150312, end: 20150312
  10. NEVANAC [Suspect]
     Active Substance: NEPAFENAC
     Indication: LENS EXTRACTION
     Dosage: UNK
     Route: 047
     Dates: start: 20150312
  11. NEO SYNESIN [Concomitant]
     Active Substance: PHENYLEPHRINE HYDROCHLORIDE
     Indication: LENS EXTRACTION
     Dosage: UNK
     Route: 047
     Dates: start: 20150312, end: 20150312
  12. FLOMOXEF [Concomitant]
     Active Substance: FLOMOXEF
     Indication: LENS EXTRACTION
     Dosage: UNK
     Dates: start: 20150312, end: 20150312
  13. CRAVIT [Concomitant]
     Active Substance: LEVOFLOXACIN
     Indication: LENS EXTRACTION
     Dosage: UNK
     Route: 047
     Dates: start: 20150312, end: 20150312
  14. BOSMIN [Concomitant]
     Active Substance: EPINEPHRINE
     Indication: LENS EXTRACTION
     Dosage: UNK
     Route: 047
     Dates: start: 20150312, end: 20150312
  15. IODINE [Concomitant]
     Active Substance: IODINE
     Indication: LENS EXTRACTION
     Dosage: UNK
     Route: 047
     Dates: start: 20150312, end: 20150312

REACTIONS (1)
  - Non-infectious endophthalmitis [Recovering/Resolving]

NARRATIVE: CASE EVENT DATE: 20150316
